FAERS Safety Report 14744444 (Version 1)
Quarter: 2018Q2

REPORT INFORMATION
  Report Type: Report from Study
  Country: US (occurrence: US)
  Receive Date: 20180411
  Receipt Date: 20180411
  Transmission Date: 20180711
  Serious: Yes (Other)
  Sender: FDA-Public Use
  Company Number: US-AMGEN-USASL2018046610

PATIENT
  Sex: Female

DRUGS (1)
  1. REPATHA [Suspect]
     Active Substance: EVOLOCUMAB
     Indication: HYPERLIPIDAEMIA
     Dosage: 420 MG, QMO
     Route: 065

REACTIONS (14)
  - Weight increased [Unknown]
  - Musculoskeletal stiffness [Unknown]
  - Cough [Unknown]
  - Diarrhoea [Unknown]
  - Injection site swelling [Recovered/Resolved]
  - Feeling abnormal [Unknown]
  - Gait disturbance [Unknown]
  - Memory impairment [Unknown]
  - Injection site erythema [Recovered/Resolved]
  - Confusional state [Unknown]
  - Abnormal dreams [Unknown]
  - Influenza like illness [Unknown]
  - Fatigue [Unknown]
  - Dyspnoea [Unknown]
